FAERS Safety Report 5989892-2 (Version None)
Quarter: 2008Q4

REPORT INFORMATION
  Report Type: 
  Country: None (occurrence: None)
  Receive Date: 20081209
  Receipt Date: 20081125
  Transmission Date: 20090506
  Serious: Yes (Death, Other)
  Sender: FDA-Public Use
  Company Number: CLOF-1000354

PATIENT
  Age: 35 Year
  Sex: Female
  Weight: 105 kg

DRUGS (3)
  1. CLOLAR [Suspect]
     Indication: ACUTE LEUKAEMIA
     Dosage: 22.5 MG/M2, QDX5,
     Dates: start: 20081022, end: 20081026
  2. IDARUBICIN HCL [Concomitant]
  3. CYTARABINE [Concomitant]

REACTIONS (6)
  - HYPERBILIRUBINAEMIA [None]
  - MUCOSAL INFLAMMATION [None]
  - MULTI-ORGAN FAILURE [None]
  - PYREXIA [None]
  - RENAL FAILURE [None]
  - VOMITING [None]
